FAERS Safety Report 4917538-0 (Version None)
Quarter: 2006Q1

REPORT INFORMATION
  Report Type: 
  Country: None (occurrence: None)
  Receive Date: 20060221
  Receipt Date: 20060209
  Transmission Date: 20060701
  Serious: Yes (Hospitalization)
  Sender: FDA-Public Use
  Company Number: US-MERCK-0602USA04478

PATIENT
  Age: 49 Year
  Sex: Male
  Weight: 82 kg

DRUGS (8)
  1. VIOXX [Suspect]
     Indication: ARTHRITIS
     Route: 048
     Dates: start: 20000211, end: 20040930
  2. BUPROPION HYDROCHLORIDE [Concomitant]
     Indication: EX-SMOKER
     Route: 065
  3. CELEXA [Concomitant]
     Indication: DEPRESSION
     Route: 065
  4. CITALOPRAM [Concomitant]
     Indication: DEPRESSION
     Route: 065
  5. CYCLOBENZAPRINE HYDROCHLORIDE [Concomitant]
     Indication: MUSCLE RELAXANT THERAPY
     Route: 048
  6. NITROGLYCERIN [Concomitant]
     Indication: ANGINA PECTORIS
     Route: 065
  7. PREDNISONE [Concomitant]
     Indication: RASH
     Route: 065
  8. TRIAMCINOLONE [Concomitant]
     Indication: RASH
     Route: 065

REACTIONS (2)
  - DYSLIPIDAEMIA [None]
  - MYOCARDIAL INFARCTION [None]
